FAERS Safety Report 8409686-8 (Version None)
Quarter: 2012Q2

REPORT INFORMATION
  Report Type: 
  Country: None (occurrence: None)
  Receive Date: 20120323
  Receipt Date: 20110324
  Transmission Date: 20120825
  Serious: Yes (Hospitalization, Disabling)
  Sender: FDA-Public Use
  Company Number: 163-21880-11020902

PATIENT
  Age: 76 Year
  Sex: Female

DRUGS (15)
  1. CULTURELLE (CULTURELLE)(TABLETS) [Concomitant]
  2. FLORASTOR (SACCHAROMYCES BOULARDII)(TABLETS) [Concomitant]
  3. MIDODRINE (MIDODRINE)(UNKNOWN) [Concomitant]
  4. ATIVAN [Concomitant]
  5. SPIRIVA (TIOTROPIUM BROMIDE)(UNKNOWN [Concomitant]
  6. AMBIEN [Concomitant]
  7. VITAMIN B-6 (PYRIDOXINE HYDROCHLORIDE)(UNKNOWN [Concomitant]
  8. REVLIMID [Suspect]
     Indication: AMYLOIDOSIS
     Dosage: 5 MG, 1 IN 1 D, PO
     Route: 048
     Dates: start: 20100311, end: 20100322
  9. REVLIMID [Suspect]
     Indication: AMYLOIDOSIS
     Dosage: 5 MG, 1 IN 1 D, PO
     Route: 048
     Dates: start: 20110101, end: 20110101
  10. FOLIC ACID (FOLIC ACID)(UNKNOWN) [Concomitant]
  11. ZOCOR (SIMVASTATIN)(UNKNOWN) [Concomitant]
  12. ADVAIR (SERETIDE MITE)(UNKNOWN) [Concomitant]
  13. RENVELA (SEVELAMER CARBONATE)(UNKNOWN) [Concomitant]
  14. DEXAMETHASONE [Concomitant]
  15. VITAMIN D (ERGOCALCIFEROL)(UNKNOWN) [Concomitant]

REACTIONS (2)
  - DIARRHOEA [None]
  - CLOSTRIDIUM DIFFICILE COLITIS [None]
